FAERS Safety Report 7226775-4 (Version None)
Quarter: 2011Q1

REPORT INFORMATION
  Report Type: 
  Country: None (occurrence: None)
  Receive Date: 20110114
  Receipt Date: 20110103
  Transmission Date: 20110831
  Serious: No
  Sender: FDA-Public Use
  Company Number: US-B.I. PHARMACEUTICALS,INC./RIDGEFIELD-2011-BP-00460BP

PATIENT
  Age: 75 Year
  Sex: Male

DRUGS (4)
  1. PRADAXA [Suspect]
     Indication: ATRIAL FIBRILLATION
     Dosage: 300 MG
     Route: 048
     Dates: start: 20101203
  2. LEVOXYL [Concomitant]
     Indication: HYPOTHYROIDISM
  3. CIALIS [Concomitant]
     Indication: ERECTILE DYSFUNCTION
  4. MULTIVITAMIN [Concomitant]
     Indication: MEDICAL DIET

REACTIONS (1)
  - CHEST PAIN [None]
